FAERS Safety Report 7213924-7 (Version None)
Quarter: 2011Q1

REPORT INFORMATION
  Report Type: 
  Country: None (occurrence: None)
  Receive Date: 20110106
  Receipt Date: 20110103
  Transmission Date: 20110831
  Serious: Yes (Hospitalization, Other)
  Sender: FDA-Public Use
  Company Number: US-ABBOTT-11P-163-0695139-00

PATIENT
  Sex: Female
  Weight: 54.48 kg

DRUGS (6)
  1. SYNTHROID [Concomitant]
     Indication: HYPOTHYROIDISM
  2. DOXEPIN HCL [Concomitant]
     Indication: DEPRESSION
  3. DEPAKOTE ER [Suspect]
     Indication: BIPOLAR I DISORDER
     Dosage: EVERY MORNING
     Dates: start: 20071211, end: 20101004
  4. DEPAKOTE ER [Suspect]
     Dosage: 1 TAB IN THE MORNING AND 2 AT BEDTIME
     Dates: start: 20101005, end: 20101125
  5. DEPAKOTE ER [Suspect]
     Dates: start: 20110101
  6. NORVASC [Concomitant]
     Indication: HYPERTENSION

REACTIONS (2)
  - CHEST PAIN [None]
  - CORONARY ARTERY OCCLUSION [None]
